FAERS Safety Report 15343869 (Version 1)
Quarter: 2018Q3

REPORT INFORMATION
  Report Type: Spontaneous
  Country: FR (occurrence: FR)
  Receive Date: 20180903
  Receipt Date: 20180903
  Transmission Date: 20181010
  Serious: Yes (Hospitalization)
  Sender: FDA-Public Use
  Company Number: FR-GLAXOSMITHKLINE-FR2018GSK157874

PATIENT
  Sex: Female

DRUGS (1)
  1. ATOVAQUONE + PROGUANIL BIOGARAN [Suspect]
     Active Substance: ATOVAQUONE\PROGUANIL HYDROCHLORIDE
     Indication: MALARIA PROPHYLAXIS
     Dosage: 1 DF, QD
     Dates: start: 20180807

REACTIONS (2)
  - Diarrhoea [Unknown]
  - Dehydration [Unknown]

NARRATIVE: CASE EVENT DATE: 20180807
